FAERS Safety Report 20249144 (Version 1)
Quarter: 2021Q4

REPORT INFORMATION
  Report Type: Spontaneous
  Country: US (occurrence: US)
  Receive Date: 20211229
  Receipt Date: 20211229
  Transmission Date: 20220303
  Serious: Yes (Hospitalization, Other)
  Sender: FDA-Public Use
  Company Number: US-SA-SAC20211224001043

PATIENT
  Age: 50 Year
  Sex: Female

DRUGS (1)
  1. AUBAGIO [Suspect]
     Active Substance: TERIFLUNOMIDE
     Indication: Multiple sclerosis
     Dosage: 14 MG, QD
     Route: 048

REACTIONS (6)
  - Sepsis [Unknown]
  - COVID-19 [Unknown]
  - Fatigue [Unknown]
  - Malaise [Unknown]
  - Loss of consciousness [Unknown]
  - Hypertension [Unknown]

NARRATIVE: CASE EVENT DATE: 20211101
